FAERS Safety Report 12774810 (Version 1)
Quarter: 2016Q3

REPORT INFORMATION
  Report Type: Spontaneous
  Country: US (occurrence: US)
  Receive Date: 20160921
  Receipt Date: 20160921
  Transmission Date: 20161109
  Serious: No
  Sender: FDA-Public Use
  Company Number: None

PATIENT
  Age: 56 Year
  Sex: Female

DRUGS (1)
  1. HUMIRA [Suspect]
     Active Substance: ADALIMUMAB
     Route: 058
     Dates: start: 20160613, end: 20160913

REACTIONS (3)
  - Immune system disorder [None]
  - Alopecia [None]
  - Movement disorder [None]

NARRATIVE: CASE EVENT DATE: 20160906
